FAERS Safety Report 13565096 (Version 2)
Quarter: 2018Q2

REPORT INFORMATION
  Report Type: Spontaneous
  Country: US (occurrence: US)
  Receive Date: 20170519
  Receipt Date: 20180521
  Transmission Date: 20180711
  Serious: No
  Sender: FDA-Public Use
  Company Number: US-BAUSCH-BL-2017-007525

PATIENT
  Sex: Female
  Weight: 116.68 kg

DRUGS (7)
  1. PULMICORT TURBUHALER [Concomitant]
     Active Substance: BUDESONIDE
     Indication: PRODUCT USED FOR UNKNOWN INDICATION
     Dosage: 0.5MG/2ML
  2. IPRATROPIUM BROMIDE NASAL SOLUTION 0.03% [Suspect]
     Active Substance: IPRATROPIUM BROMIDE
     Dosage: 2.5MG TO 0.5MG PER 03ML
     Route: 045
  3. IPRATROPIUM BROMIDE NASAL SOLUTION 0.03% [Suspect]
     Active Substance: IPRATROPIUM BROMIDE
     Indication: SLEEP APNOEA SYNDROME
     Dosage: USING THE PRODUCT 2 TO 3 TIMES DAILY, 2.5MG TO 0.5MG PER 03ML
     Route: 045
     Dates: start: 201703
  4. BROVANA [Concomitant]
     Active Substance: ARFORMOTEROL TARTRATE
     Indication: PRODUCT USED FOR UNKNOWN INDICATION
     Dosage: 15MCG/2ML
  5. IPRATROPIUM BROMIDE NASAL SOLUTION 0.03% [Suspect]
     Active Substance: IPRATROPIUM BROMIDE
     Indication: RHINORRHOEA
     Dosage: 1 SPRAY IN EACH NOSTRIL ONCE DAILY
     Route: 045
  6. IPRATROPIUM BROMIDE NASAL SOLUTION 0.03% [Suspect]
     Active Substance: IPRATROPIUM BROMIDE
     Indication: CHRONIC OBSTRUCTIVE PULMONARY DISEASE
     Dosage: IF SHE FELT THE RETURN OF THE RUNNY NOSE SYMPTOMS DURING THE DAY, SHE MAY USE AN ADDITIONAL SPRAY IN
     Route: 045
  7. ALBUTEROL. [Concomitant]
     Active Substance: ALBUTEROL
     Indication: PRODUCT USED FOR UNKNOWN INDICATION
     Dosage: 108MCG/PER ONE INHALE

REACTIONS (1)
  - Drug ineffective [Unknown]
